FAERS Safety Report 13256135 (Version 1)
Quarter: 2017Q1

REPORT INFORMATION
  Report Type: Spontaneous
  Country: DE (occurrence: DE)
  Receive Date: 20170221
  Receipt Date: 20170221
  Transmission Date: 20170428
  Serious: Yes (Other)
  Sender: FDA-Public Use
  Company Number: DE-PFIZER INC-2017063453

PATIENT
  Age: 73 Year
  Sex: Male

DRUGS (1)
  1. AMIODARONE HCL [Suspect]
     Active Substance: AMIODARONE HYDROCHLORIDE
     Indication: ARRHYTHMIA
     Dosage: 200 MG, DAILY

REACTIONS (2)
  - Demyelinating polyneuropathy [Recovering/Resolving]
  - Vestibular disorder [Recovering/Resolving]
